FAERS Safety Report 17472441 (Version 1)
Quarter: 2020Q1

REPORT INFORMATION
  Report Type: Report from Study
  Country: GB (occurrence: GB)
  Receive Date: 20200228
  Receipt Date: 20200228
  Transmission Date: 20200409
  Serious: Yes (Other)
  Sender: FDA-Public Use
  Company Number: NVSC2020GB046332

PATIENT
  Sex: Female

DRUGS (1)
  1. COSENTYX [Suspect]
     Active Substance: SECUKINUMAB
     Indication: PSORIATIC ARTHROPATHY
     Dosage: 300 MG, QMO (WEEK 0,1,2,3 AND THEN MONTHLY)
     Route: 058
     Dates: start: 20200207

REACTIONS (5)
  - Oropharyngeal pain [Unknown]
  - Loss of consciousness [Unknown]
  - Headache [Unknown]
  - Nasopharyngitis [Unknown]
  - Head injury [Unknown]
